FAERS Safety Report 14430559 (Version 2)
Quarter: 2018Q2

REPORT INFORMATION
  Report Type: Spontaneous
  Country: US (occurrence: US)
  Receive Date: 20180124
  Receipt Date: 20180601
  Transmission Date: 20180711
  Serious: Yes (Hospitalization, Congenital Anomaly, Other)
  Sender: FDA-Public Use
  Company Number: US-ASTRAZENECA-2018SE08506

PATIENT
  Age: 77 Year
  Sex: Male
  Weight: 76.2 kg

DRUGS (61)
  1. PRILOSEC [Suspect]
     Active Substance: OMEPRAZOLE MAGNESIUM
     Indication: GASTROOESOPHAGEAL REFLUX DISEASE
     Dosage: 20.0MG UNKNOWN
     Route: 048
     Dates: start: 1994, end: 2010
  2. PEPCID [Concomitant]
     Active Substance: FAMOTIDINE
     Dates: start: 2000
  3. TAGAMET HB [Concomitant]
     Active Substance: CIMETIDINE
  4. EDARBI [Concomitant]
     Active Substance: AZILSARTAN KAMEDOXOMIL
  5. LIVALO [Concomitant]
     Active Substance: PITAVASTATIN CALCIUM
  6. MELOXICAM. [Concomitant]
     Active Substance: MELOXICAM
     Route: 065
  7. NEXIUM [Suspect]
     Active Substance: ESOMEPRAZOLE MAGNESIUM
     Indication: GASTROOESOPHAGEAL REFLUX DISEASE
     Route: 048
     Dates: start: 1994, end: 2016
  8. MULTI-VITAMIN WITH IRON [Concomitant]
     Indication: ANAEMIA
  9. RANITIDINE. [Concomitant]
     Active Substance: RANITIDINE
     Dosage: GENERIC
     Dates: start: 2000
  10. ZESTRIL [Concomitant]
     Active Substance: LISINOPRIL
  11. ALTACE [Concomitant]
     Active Substance: RAMIPRIL
  12. DIOVAN [Concomitant]
     Active Substance: VALSARTAN
  13. LIPEX [Concomitant]
     Active Substance: SIMVASTATIN
  14. PREVACID [Suspect]
     Active Substance: LANSOPRAZOLE
     Indication: GASTROOESOPHAGEAL REFLUX DISEASE
     Dosage: 30.0MG UNKNOWN
     Route: 048
     Dates: start: 2000, end: 2016
  15. MAALOX/TUMS [Concomitant]
     Dates: start: 2003
  16. LOTENSIN [Concomitant]
     Active Substance: BENAZEPRIL HYDROCHLORIDE
  17. BUMEX [Concomitant]
     Active Substance: BUMETANIDE
  18. HYGROTON [Concomitant]
     Active Substance: CHLORTHALIDONE
  19. CRESTOR [Concomitant]
     Active Substance: ROSUVASTATIN CALCIUM
  20. TAMSULOSIN [Concomitant]
     Active Substance: TAMSULOSIN
     Dosage: 1 CAPSULE DAILY
     Route: 048
  21. PRILOSEC [Suspect]
     Active Substance: OMEPRAZOLE MAGNESIUM
     Indication: GASTROOESOPHAGEAL REFLUX DISEASE
     Dosage: 20.0MG UNKNOWN
     Route: 048
     Dates: start: 1994, end: 2016
  22. PREVACID [Suspect]
     Active Substance: LANSOPRAZOLE
     Indication: GASTRIC ULCER
     Route: 048
     Dates: start: 1994, end: 2016
  23. PREVACID [Suspect]
     Active Substance: LANSOPRAZOLE
     Indication: GASTRIC ULCER
     Dosage: 30.0MG UNKNOWN
     Route: 048
     Dates: start: 2000, end: 2016
  24. ACIPHEX [Suspect]
     Active Substance: RABEPRAZOLE SODIUM
     Indication: GASTROOESOPHAGEAL REFLUX DISEASE
     Dosage: 20.0MG UNKNOWN
     Route: 065
     Dates: start: 2000, end: 2001
  25. ZOCOR/SIMVASTATIN [Concomitant]
     Indication: HYPERCHOLESTEROLAEMIA
     Dates: start: 1994, end: 2016
  26. ZANTAC [Concomitant]
     Active Substance: RANITIDINE HYDROCHLORIDE
     Dates: start: 1994, end: 1995
  27. PROPRANOLOL [Concomitant]
     Active Substance: PROPRANOLOL HYDROCHLORIDE
     Dosage: 1 TABLET, PO, ONCE OR TWICE A DAY
     Route: 048
  28. CELEBREX [Concomitant]
     Active Substance: CELECOXIB
     Route: 065
  29. ASPIRIN. [Concomitant]
     Active Substance: ASPIRIN
     Dates: start: 2011, end: 2016
  30. MICARDIS [Concomitant]
     Active Substance: TELMISARTAN
  31. ALDACTAZIDE [Concomitant]
     Active Substance: HYDROCHLOROTHIAZIDE\SPIRONOLACTONE
  32. MAXZIDE [Concomitant]
     Active Substance: HYDROCHLOROTHIAZIDE\TRIAMTERENE
  33. LESCOL [Concomitant]
     Active Substance: FLUVASTATIN SODIUM
  34. MEVACOR [Concomitant]
     Active Substance: LOVASTATIN
  35. PRAVACHOL [Concomitant]
     Active Substance: PRAVASTATIN SODIUM
  36. PREVACID [Suspect]
     Active Substance: LANSOPRAZOLE
     Indication: GASTROOESOPHAGEAL REFLUX DISEASE
     Route: 048
     Dates: start: 1994, end: 2016
  37. DEXILANT [Suspect]
     Active Substance: DEXLANSOPRAZOLE
     Route: 065
  38. ZEGERID [Suspect]
     Active Substance: OMEPRAZOLE\SODIUM BICARBONATE
     Route: 065
  39. VASOTEC [Concomitant]
     Active Substance: ENALAPRIL MALEATE
     Indication: HYPERTENSION
     Dates: start: 1995, end: 2008
  40. ALLOPURINOL. [Concomitant]
     Active Substance: ALLOPURINOL
     Indication: GOUT
     Dates: start: 1994, end: 2016
  41. TYLENOL [Concomitant]
     Active Substance: ACETAMINOPHEN
     Dates: start: 2014, end: 2016
  42. ACCUPRIL [Concomitant]
     Active Substance: QUINAPRIL HYDROCHLORIDE
  43. BAYCOL [Concomitant]
     Active Substance: CERIVASTATIN SODIUM
  44. IBUPROFEN. [Concomitant]
     Active Substance: IBUPROFEN
     Route: 065
  45. COLCHICINE. [Concomitant]
     Active Substance: COLCHICINE
     Route: 065
  46. PREVACID [Suspect]
     Active Substance: LANSOPRAZOLE
     Indication: GASTROOESOPHAGEAL REFLUX DISEASE
     Dosage: LANSOPRAZOLE30.0MG UNKNOWN
     Route: 048
     Dates: start: 2011, end: 2015
  47. PROTONIX [Suspect]
     Active Substance: PANTOPRAZOLE SODIUM
     Route: 065
  48. VITAMIN D [Concomitant]
     Active Substance: CHOLECALCIFEROL
     Indication: RENAL DISORDER
     Dates: start: 2010, end: 2016
  49. COZAAR [Concomitant]
     Active Substance: LOSARTAN POTASSIUM
  50. BENICAR [Concomitant]
     Active Substance: OLMESARTAN MEDOXOMIL
  51. VEROSPIRON [Concomitant]
     Active Substance: SPIRONOLACTONE
  52. DEMADEX [Concomitant]
     Active Substance: TORSEMIDE
  53. LIPITOR [Concomitant]
     Active Substance: ATORVASTATIN CALCIUM
  54. NEXIUM [Suspect]
     Active Substance: ESOMEPRAZOLE MAGNESIUM
     Indication: GASTROOESOPHAGEAL REFLUX DISEASE
     Dosage: 40.0MG UNKNOWN
     Route: 048
     Dates: start: 2001, end: 2009
  55. PREVACID [Suspect]
     Active Substance: LANSOPRAZOLE
     Indication: GASTRIC ULCER
     Dosage: LANSOPRAZOLE30.0MG UNKNOWN
     Route: 048
     Dates: start: 2011, end: 2015
  56. PREMARIN [Concomitant]
     Active Substance: ESTROGENS, CONJUGATED
     Indication: BLOOD OESTROGEN
     Dates: start: 1994, end: 2001
  57. CAPOTEN [Concomitant]
     Active Substance: CAPTOPRIL
  58. AVAPRO [Concomitant]
     Active Substance: IRBESARTAN
  59. LASIX [Concomitant]
     Active Substance: FUROSEMIDE
  60. APO-HYDRO [Concomitant]
     Active Substance: HYDROCHLOROTHIAZIDE
  61. KETOROLAC [Concomitant]
     Active Substance: KETOROLAC\KETOROLAC TROMETHAMINE
     Route: 065

REACTIONS (27)
  - Bile duct obstruction [Unknown]
  - Tubulointerstitial nephritis [Unknown]
  - Pyelonephritis fungal [Unknown]
  - Glomerulonephritis [Unknown]
  - Acute kidney injury [Unknown]
  - Hypertension [Unknown]
  - End stage renal disease [Unknown]
  - Gout [Unknown]
  - Hypomagnesaemia [Unknown]
  - Pharyngitis [Unknown]
  - Dyslipidaemia [Unknown]
  - Hypocalcaemia [Unknown]
  - Nephrocalcinosis [Unknown]
  - Nephrotic syndrome [Unknown]
  - Pyelonephritis [Unknown]
  - Urinary tract infection [Unknown]
  - Anaphylactic reaction [Unknown]
  - Chronic kidney disease [Unknown]
  - Joint injury [Unknown]
  - Hypercalcaemia [Unknown]
  - Kidney infection [Unknown]
  - Skin infection [Unknown]
  - Renal injury [Unknown]
  - Congenital cystic kidney disease [Unknown]
  - Metabolic disorder [Unknown]
  - Renal artery stenosis [Unknown]
  - Hypotension [Unknown]

NARRATIVE: CASE EVENT DATE: 2014
